FAERS Safety Report 19953349 (Version 2)
Quarter: 2021Q4

REPORT INFORMATION
  Report Type: Spontaneous
  Country: US (occurrence: US)
  Receive Date: 20211013
  Receipt Date: 20211018
  Transmission Date: 20220303
  Serious: Yes (Hospitalization, Other)
  Sender: FDA-Public Use
  Company Number: US-BRISTOL-MYERS SQUIBB COMPANY-BMS-2021-102087

PATIENT
  Age: 42 Year
  Sex: Female

DRUGS (7)
  1. CARBOPLATIN [Suspect]
     Active Substance: CARBOPLATIN
     Indication: Breast cancer
     Dosage: NUMBER OF UNITS IN THE INTERVAL: 4, DEFINITION OF THE TIME INTERVAL UNIT: CYCLICAL
     Route: 065
  2. CARBOPLATIN [Suspect]
     Active Substance: CARBOPLATIN
     Indication: Anal squamous cell carcinoma
  3. PACLITAXEL [Suspect]
     Active Substance: PACLITAXEL
     Indication: Anal squamous cell carcinoma
     Dosage: NUMBER OF UNITS IN THE INTERVAL: 4, DEFINITION OF THE TIME INTERVAL UNIT: CYCLICAL
     Route: 065
  4. PACLITAXEL [Suspect]
     Active Substance: PACLITAXEL
     Indication: Breast cancer
  5. NIVOLUMAB [Suspect]
     Active Substance: NIVOLUMAB
     Indication: Breast cancer
     Dosage: NUMBER OF UNITS IN THE INTERVAL: 4, DEFINITION OF THE TIME INTERVAL UNIT: CYCLICAL
     Route: 065
  6. NIVOLUMAB [Suspect]
     Active Substance: NIVOLUMAB
     Indication: Anal squamous cell carcinoma
  7. PROCHLORPERAZINE [Concomitant]
     Active Substance: PROCHLORPERAZINE
     Indication: Product used for unknown indication
     Route: 065

REACTIONS (4)
  - Urinary tract infection pseudomonal [Unknown]
  - Parkinsonism [Recovering/Resolving]
  - Drug interaction [Recovering/Resolving]
  - Intentional product use issue [Unknown]
